FAERS Safety Report 22072198 (Version 1)
Quarter: 2023Q1

REPORT INFORMATION
  Report Type: Report from Study
  Country: US (occurrence: US)
  Receive Date: 20230308
  Receipt Date: 20230308
  Transmission Date: 20230418
  Serious: No
  Sender: FDA-Public Use
  Company Number: US-ESPERIONTHERAPEUTICS-2023USA00089

PATIENT
  Sex: Female
  Weight: 98.866 kg

DRUGS (6)
  1. BEMPEDOIC ACID\EZETIMIBE [Suspect]
     Active Substance: BEMPEDOIC ACID\EZETIMIBE
     Indication: Hypercholesterolaemia
     Dosage: 180 MG/10 MG, QD
     Route: 048
     Dates: start: 20230123
  2. ASPIRIN [Concomitant]
     Active Substance: ASPIRIN
     Dosage: 81 MILLIGRAM CHEWABLE
     Route: 048
  3. TENORMIN [Concomitant]
     Active Substance: ATENOLOL
     Dosage: 50 MILLIGRAM HALF TABLET
     Route: 048
  4. XYZAL [Concomitant]
     Active Substance: LEVOCETIRIZINE DIHYDROCHLORIDE
     Dosage: 5 MILLIGRAM, QD
     Route: 048
  5. SYNTHROID [Concomitant]
     Active Substance: LEVOTHYROXINE SODIUM
     Dosage: 125 MICROGRAM, QD AS DIRECTED
     Route: 065
  6. ALTACE [Concomitant]
     Active Substance: RAMIPRIL
     Dosage: 5 MILLIGRAM, QD
     Route: 048

REACTIONS (1)
  - Abdominal discomfort [Unknown]
